FAERS Safety Report 6655632-7 (Version None)
Quarter: 2010Q1

REPORT INFORMATION
  Report Type: 
  Country: None (occurrence: None)
  Receive Date: 20100329
  Receipt Date: 20100317
  Transmission Date: 20100710
  Serious: Yes (Life-Threatening)
  Sender: FDA-Public Use
  Company Number: IT-PFIZER INC-2010009548

PATIENT
  Age: 35 Year
  Sex: Male

DRUGS (4)
  1. ZAVEDOS [Suspect]
     Indication: LYMPHOCYTIC LEUKAEMIA
     Dosage: 12 MG/M2, X/DAY
     Route: 042
     Dates: start: 20090322, end: 20090323
  2. ENDOXAN BAXTER [Suspect]
     Indication: LYMPHOCYTIC LEUKAEMIA
     Dosage: 300 MG/M2, X/DAY
     Route: 042
     Dates: start: 20090318, end: 20090320
  3. VINCRISTINA TEVA [Suspect]
     Indication: LYMPHOCYTIC LEUKAEMIA
     Dosage: 6 MG, TOTAL DOSE
     Route: 042
     Dates: start: 20090322, end: 20090405
  4. ELSPAR [Suspect]
     Indication: LYMPHOCYTIC LEUKAEMIA
     Dosage: 12000 IU, DAILY
     Route: 042
     Dates: start: 20090329, end: 20090401

REACTIONS (4)
  - ASPERGILLOSIS [None]
  - FEBRILE BONE MARROW APLASIA [None]
  - HEADACHE [None]
  - HYPERTRANSAMINASAEMIA [None]
